FAERS Safety Report 10927963 (Version 1)
Quarter: 2015Q1

REPORT INFORMATION
  Report Type: Spontaneous
  Country: US (occurrence: None)
  Receive Date: 20150317
  Receipt Date: 20150317
  Transmission Date: 20150721
  Serious: Yes (Disabling, Other)
  Sender: FDA-Public Use
  Company Number: None

PATIENT
  Age: 67 Year
  Sex: Female
  Weight: 109.77 kg

DRUGS (11)
  1. 2-TOTAL KNEE REPLACEMENTS [Concomitant]
  2. MULTIVITAMINS [Concomitant]
     Active Substance: VITAMINS
  3. RECLAST [Suspect]
     Active Substance: ZOLEDRONIC ACID
     Indication: OSTEOPOROSIS POSTMENOPAUSAL
     Dosage: 1 INFUSION, GOOD FOR A YEAR, ANNUAL
     Route: 042
     Dates: start: 20140505
  4. VITAMIN B12 [Concomitant]
     Active Substance: CYANOCOBALAMIN
  5. DIGESTIVE ADVANTAGE--PROBIOTIC [Concomitant]
  6. ALBUTERAL SULFATE [Concomitant]
  7. AMLODIPINE BESYLATE. [Concomitant]
     Active Substance: AMLODIPINE BESYLATE
  8. HYDROCHLOROTHIAZIDE. [Concomitant]
     Active Substance: HYDROCHLOROTHIAZIDE
  9. OMEGA-3--KRILL OIL [Concomitant]
  10. VITAMIN D-3 [Concomitant]
  11. DOCUSATE SODIUM. [Concomitant]
     Active Substance: DOCUSATE SODIUM

REACTIONS (10)
  - Uveitis [None]
  - Headache [None]
  - Bone pain [None]
  - Chills [None]
  - Photosensitivity reaction [None]
  - Tendonitis [None]
  - Frustration [None]
  - Pyrexia [None]
  - Musculoskeletal stiffness [None]
  - Pain in extremity [None]

NARRATIVE: CASE EVENT DATE: 20140505
